FAERS Safety Report 9960206 (Version 2)
Quarter: 2014Q1

REPORT INFORMATION
  Report Type: Report from Study
  Country: US (occurrence: US)
  Receive Date: 20140305
  Receipt Date: 20140305
  Transmission Date: 20141002
  Serious: No
  Sender: FDA-Public Use
  Company Number: US-ABBVIE-13P-163-1072605-00

PATIENT
  Age: 72 Year
  Sex: Female

DRUGS (14)
  1. HUMIRA [Suspect]
     Indication: COLITIS ULCERATIVE
     Route: 058
     Dates: start: 20130315, end: 20130315
  2. HUMIRA [Suspect]
     Route: 058
     Dates: start: 20130329, end: 20130329
  3. HUMIRA [Suspect]
     Route: 058
     Dates: end: 20130510
  4. PREDNISONE EYE DROPS [Suspect]
     Dates: start: 201303
  5. ASACOL [Concomitant]
     Indication: CROHN^S DISEASE
  6. WARFARIN [Concomitant]
     Indication: PULMONARY EMBOLISM
  7. ALLEGRA [Concomitant]
     Indication: SEASONAL ALLERGY
  8. VITAMIN B 12 [Concomitant]
     Indication: SUPPLEMENTATION THERAPY
  9. APRISO [Concomitant]
     Indication: COLITIS ULCERATIVE
  10. OMEPRAZOLE [Concomitant]
     Indication: GASTROOESOPHAGEAL REFLUX DISEASE
  11. FISH OIL [Concomitant]
     Indication: SUPPLEMENTATION THERAPY
  12. MULTIVITAMIN [Concomitant]
     Indication: SUPPLEMENTATION THERAPY
  13. STRALAGUS [Concomitant]
     Indication: IMMUNE SYSTEM DISORDER
  14. STRALAGUS [Concomitant]
     Indication: SUPPLEMENTATION THERAPY

REACTIONS (14)
  - Dizziness [Recovered/Resolved]
  - Laziness [Recovering/Resolving]
  - Nasopharyngitis [Recovering/Resolving]
  - Sneezing [Recovering/Resolving]
  - Rhinorrhoea [Recovered/Resolved]
  - Eye pruritus [Recovered/Resolved]
  - Chills [Not Recovered/Not Resolved]
  - Hyperhidrosis [Not Recovered/Not Resolved]
  - Malaise [Not Recovered/Not Resolved]
  - Nausea [Recovered/Resolved]
  - Gastrooesophageal reflux disease [Not Recovered/Not Resolved]
  - Abdominal discomfort [Not Recovered/Not Resolved]
  - Feeling abnormal [Not Recovered/Not Resolved]
  - Dyspepsia [Recovered/Resolved]
